APPROVED DRUG PRODUCT: FLAVOXATE HYDROCHLORIDE
Active Ingredient: FLAVOXATE HYDROCHLORIDE
Strength: 100MG
Dosage Form/Route: TABLET;ORAL
Application: A076831 | Product #001 | TE Code: AB
Applicant: PADAGIS US LLC
Approved: Dec 16, 2004 | RLD: No | RS: Yes | Type: RX